FAERS Safety Report 16805460 (Version 1)
Quarter: 2019Q4

REPORT INFORMATION
  Report Type: Spontaneous
  Country: US (occurrence: US)
  Receive Date: 20190913
  Receipt Date: 20190913
  Transmission Date: 20200122
  Serious: Yes (Hospitalization)
  Sender: FDA-Public Use
  Company Number: None

PATIENT
  Age: 62 Year
  Sex: Female

DRUGS (1)
  1. ENBREL [Suspect]
     Active Substance: ETANERCEPT
     Indication: PSORIATIC ARTHROPATHY
     Dosage: ?          OTHER FREQUENCY:ONCE A WEEEK;?
     Route: 058
     Dates: start: 20190719, end: 20190719

REACTIONS (2)
  - Sepsis [None]
  - Urinary tract infection [None]

NARRATIVE: CASE EVENT DATE: 20190725
